FAERS Safety Report 5241115-8 (Version None)
Quarter: 2007Q1

REPORT INFORMATION
  Report Type: 
  Country: None (occurrence: None)
  Receive Date: 20070214
  Receipt Date: 20070214
  Transmission Date: 20070707
  Serious: Yes (Death)
  Sender: FDA-Public Use
  Company Number: None

PATIENT
  Age: 55 Year
  Sex: Male

DRUGS (10)
  1. PHOSPHOSODA FLAVOR NOT SPECIFIED [Suspect]
     Indication: COLONOSCOPY
     Dosage: 90 ML; X1; PO
     Route: 048
  2. PREDNISONE [Concomitant]
  3. MYCOPHENOLATE MOFETIL [Concomitant]
  4. CYCLOSPORINE [Concomitant]
  5. OXYBUTYNIN [Concomitant]
  6. DILTIAZEM [Concomitant]
  7. DIGOXIN [Concomitant]
  8. HYDROCODONE WITH ACETAMINOPHEN [Concomitant]
  9. SIMVASTATIN [Concomitant]
  10. VITAMIN TAB [Concomitant]

REACTIONS (11)
  - ACUTE PULMONARY OEDEMA [None]
  - ANION GAP INCREASED [None]
  - BLOOD CREATINE INCREASED [None]
  - BLOOD MAGNESIUM INCREASED [None]
  - BLOOD SODIUM INCREASED [None]
  - BLOOD UREA INCREASED [None]
  - CARDIO-RESPIRATORY ARREST [None]
  - COLITIS ISCHAEMIC [None]
  - ELECTROCARDIOGRAM ST SEGMENT ABNORMAL [None]
  - HYPERPHOSPHATAEMIA [None]
  - SINUS TACHYCARDIA [None]
